FAERS Safety Report 14158836 (Version 1)
Quarter: 2017Q4

REPORT INFORMATION
  Report Type: Spontaneous
  Country: US (occurrence: US)
  Receive Date: 20171103
  Receipt Date: 20171103
  Transmission Date: 20180321
  Serious: No
  Sender: FDA-Public Use
  Company Number: US-MYLANLABS-2017M1069353

PATIENT
  Sex: Female

DRUGS (1)
  1. VALSARTAN. [Suspect]
     Active Substance: VALSARTAN
     Indication: PRODUCT USED FOR UNKNOWN INDICATION
     Dosage: UNK

REACTIONS (7)
  - Diarrhoea [Unknown]
  - Headache [Unknown]
  - Lethargy [Unknown]
  - Pruritus [Unknown]
  - Peripheral swelling [Unknown]
  - Dyspnoea [Unknown]
  - Unevaluable event [Unknown]
